FAERS Safety Report 8965443 (Version 1)
Quarter: 2012Q4

REPORT INFORMATION
  Report Type: 
  Country: PE (occurrence: PE)
  Receive Date: 20121213
  Receipt Date: 20121213
  Transmission Date: 20130627
  Serious: Yes (Hospitalization)
  Sender: FDA-Public Use
  Company Number: PE-PFIZER INC-2012306474

PATIENT
  Age: 85 Year
  Sex: Female

DRUGS (1)
  1. EFFEXOR XR [Suspect]
     Indication: DEPRESSION
     Dosage: 37.5 mg, 2x/day
     Route: 048
     Dates: start: 2010, end: 20121130

REACTIONS (1)
  - Cyclosporidium infection [Recovered/Resolved]
